FAERS Safety Report 11719082 (Version 1)
Quarter: 2015Q4

REPORT INFORMATION
  Report Type: Report from Study
  Country: GB (occurrence: GB)
  Receive Date: 20151110
  Receipt Date: 20151110
  Transmission Date: 20160304
  Serious: Yes (Death)
  Sender: FDA-Public Use
  Company Number: GB-CELGENE-GBR-2015107427

PATIENT
  Age: 72 Year
  Sex: Male
  Weight: 43 kg

DRUGS (3)
  1. THALIDOMIDE CELGENE [Suspect]
     Active Substance: THALIDOMIDE
     Indication: PLASMA CELL MYELOMA
     Route: 048
     Dates: start: 20140811, end: 20140907
  2. THALIDOMIDE CELGENE [Suspect]
     Active Substance: THALIDOMIDE
     Route: 048
     Dates: start: 20140909, end: 20141006
  3. THALIDOMIDE CELGENE [Suspect]
     Active Substance: THALIDOMIDE
     Route: 048
     Dates: start: 20141007, end: 20141103

REACTIONS (1)
  - Treatment failure [Fatal]

NARRATIVE: CASE EVENT DATE: 20150105
